FAERS Safety Report 9836136 (Version 1)
Quarter: 2014Q1

REPORT INFORMATION
  Report Type: Spontaneous
  Country: ES (occurrence: ES)
  Receive Date: 20140123
  Receipt Date: 20140123
  Transmission Date: 20141002
  Serious: Yes (Other)
  Sender: FDA-Public Use
  Company Number: ES-009507513-1401ESP008762

PATIENT
  Age: 18 Year
  Sex: Female
  Weight: 48 kg

DRUGS (2)
  1. REBETOL [Suspect]
     Indication: HEPATITIS C
     Dosage: 400MG , DOS VECES AL DIA
     Route: 048
     Dates: start: 20130827, end: 20140109
  2. PEGASYS [Suspect]
     Indication: HEPATITIS C
     Dosage: 180 MCG, 1 VEZ A LA SEMANA
     Route: 058
     Dates: start: 20130827, end: 20140109

REACTIONS (1)
  - Secondary hyperthyroidism [Recovering/Resolving]
